FAERS Safety Report 13305768 (Version 1)
Quarter: 2017Q1

REPORT INFORMATION
  Report Type: Spontaneous
  Country: JP (occurrence: JP)
  Receive Date: 20170308
  Receipt Date: 20170308
  Transmission Date: 20170428
  Serious: Yes (Death, Hospitalization)
  Sender: FDA-Public Use
  Company Number: JP-ELI_LILLY_AND_COMPANY-JP201703000016

PATIENT
  Age: 72 Year
  Sex: Male
  Weight: 52.9 kg

DRUGS (7)
  1. ALIMTA [Suspect]
     Active Substance: PEMETREXED DISODIUM
     Indication: LUNG ADENOCARCINOMA STAGE III
     Dosage: UNK
     Route: 042
     Dates: start: 20160126, end: 20160222
  2. PANVITAN                           /05664401/ [Concomitant]
     Dosage: UNK
     Route: 048
     Dates: start: 20160125, end: 20160328
  3. METHYCOBAL [Concomitant]
     Active Substance: METHYLCOBALAMIN
     Dosage: UNK
     Route: 030
     Dates: start: 20160125
  4. METHYCOBAL [Concomitant]
     Active Substance: METHYLCOBALAMIN
     Dosage: 500 UG, TID
     Route: 048
     Dates: start: 20150904
  5. GOSHAJINKIGAN [Concomitant]
     Active Substance: HERBALS
     Dosage: 2.5 G, TID
     Route: 048
     Dates: start: 20151008
  6. AMBROXOL [Concomitant]
     Active Substance: AMBROXOL
     Dosage: 15 MG, TID
     Route: 048
     Dates: start: 20151207
  7. NEXIUM [Concomitant]
     Active Substance: ESOMEPRAZOLE MAGNESIUM
     Dosage: 20 MG, QD
     Route: 048
     Dates: start: 20150805

REACTIONS (1)
  - Interstitial lung disease [Fatal]

NARRATIVE: CASE EVENT DATE: 20160328
